FAERS Safety Report 5388484-6 (Version None)
Quarter: 2007Q3

REPORT INFORMATION
  Report Type: 
  Country: None (occurrence: None)
  Receive Date: 20070716
  Receipt Date: 20070704
  Transmission Date: 20080115
  Serious: Yes (Hospitalization, Other)
  Sender: FDA-Public Use
  Company Number: JP-PFIZER INC-2006126627

PATIENT
  Sex: Male
  Weight: 72.4 kg

DRUGS (2)
  1. CARDENALIN [Suspect]
     Indication: HYPERTENSION
     Dosage: DAILY DOSE:2MG
     Route: 048
     Dates: start: 19990906, end: 20060831
  2. NORVASC [Suspect]
     Indication: HYPERTENSION
     Dosage: DAILY DOSE:5MG
     Route: 048
     Dates: start: 19980407, end: 20060808

REACTIONS (3)
  - EOSINOPHIL COUNT INCREASED [None]
  - LICHEN PLANUS [None]
  - SKIN DISORDER [None]
